FAERS Safety Report 5609039-1 (Version None)
Quarter: 2008Q1

REPORT INFORMATION
  Report Type: 
  Country: None (occurrence: None)
  Receive Date: 20080131
  Receipt Date: 20080125
  Transmission Date: 20080703
  Serious: Yes (Hospitalization, Other)
  Sender: FDA-Public Use
  Company Number: US-AVENTIS-200810384US

PATIENT
  Sex: Female
  Weight: 82.6 kg

DRUGS (9)
  1. TAXOTERE [Suspect]
     Route: 042
     Dates: start: 20080115
  2. XANAX [Concomitant]
     Dosage: DOSE: UNK
  3. VICODIN [Concomitant]
     Dosage: DOSE: UNK
  4. DYAZIDE [Concomitant]
     Dosage: DOSE: UNK
  5. AMBIEN [Concomitant]
     Dosage: DOSE: UNK
  6. THYROID PREPARATIONS [Concomitant]
     Dosage: DOSE: UNK
  7. ZOMETA [Concomitant]
     Indication: OSTEOPOROSIS
     Dosage: DOSE: UNK
  8. UNKNOWN DRUG [Concomitant]
     Dosage: DOSE: UNK
     Dates: start: 20080115, end: 20080115
  9. MULTI-VITAMINS [Concomitant]
     Dosage: DOSE: UNK

REACTIONS (10)
  - ABDOMINAL PAIN [None]
  - BACK PAIN [None]
  - CHEST PAIN [None]
  - DIARRHOEA [None]
  - DYSPNOEA [None]
  - INJECTION SITE EXTRAVASATION [None]
  - MUSCULOSKELETAL PAIN [None]
  - OESOPHAGEAL SPASM [None]
  - PAIN [None]
  - PLEURAL EFFUSION [None]
